FAERS Safety Report 24690817 (Version 1)
Quarter: 2024Q4

REPORT INFORMATION
  Report Type: Report from Study
  Country: CA (occurrence: CA)
  Receive Date: 20241203
  Receipt Date: 20241203
  Transmission Date: 20250115
  Serious: Yes (Other)
  Sender: ABBVIE
  Company Number: CA-ABBVIE-6027542

PATIENT
  Age: 33 Year
  Sex: Male

DRUGS (2)
  1. RINVOQ [Suspect]
     Active Substance: UPADACITINIB
     Indication: Crohn^s disease
     Dosage: FORM STRENGTH: 30 MG
     Route: 048
     Dates: start: 20240205
  2. PREDNISONE [Concomitant]
     Active Substance: PREDNISONE
     Indication: Product used for unknown indication

REACTIONS (8)
  - Intestinal resection [Unknown]
  - Aphthous ulcer [Unknown]
  - Anorectal disorder [Unknown]
  - Enteritis [Unknown]
  - Excessive granulation tissue [Unknown]
  - Faecal calprotectin abnormal [Unknown]
  - Colitis [Unknown]
  - Anastomotic complication [Unknown]

NARRATIVE: CASE EVENT DATE: 20240101
